FAERS Safety Report 23441391 (Version 1)
Quarter: 2024Q1

REPORT INFORMATION
  Report Type: Spontaneous
  Country: GB (occurrence: GB)
  Receive Date: 20240125
  Receipt Date: 20240125
  Transmission Date: 20240409
  Serious: Yes (Other)
  Sender: FDA-Public Use
  Company Number: GB-ALLERGAN-2233055US

PATIENT

DRUGS (1)
  1. ACULAR [Suspect]
     Active Substance: KETOROLAC TROMETHAMINE
     Indication: Product used for unknown indication
     Dosage: DOSE DESC: UNK
     Route: 047

REACTIONS (3)
  - Macular oedema [Unknown]
  - Nasal congestion [Unknown]
  - Vision blurred [Unknown]
